FAERS Safety Report 14861952 (Version 3)
Quarter: 2018Q4

REPORT INFORMATION
  Report Type: Spontaneous
  Country: IT (occurrence: IT)
  Receive Date: 20180508
  Receipt Date: 20181113
  Transmission Date: 20190204
  Serious: Yes (Hospitalization, Other)
  Sender: FDA-Public Use
  Company Number: IT-SA-2018SA128133

PATIENT
  Age: 61 Year
  Sex: Male
  Weight: 56 kg

DRUGS (8)
  1. BISOPROLOL HEMIFUMARATE [Concomitant]
     Active Substance: BISOPROLOL FUMARATE
     Indication: ISCHAEMIC HEART DISEASE PROPHYLAXIS
     Dosage: 25 MG,UNK
  2. CARDIOASPIRIN [Concomitant]
     Active Substance: ASPIRIN
     Dosage: 100 MG,UNK
     Route: 048
  3. LANSOPRAZOLE. [Concomitant]
     Active Substance: LANSOPRAZOLE
     Dosage: 20 MG,UNK
     Route: 048
  4. ESKIM [Concomitant]
     Active Substance: OMEGA-3 FATTY ACIDS
     Dosage: 1000 MG,UNK
     Route: 048
  5. EZETROL [Concomitant]
     Active Substance: EZETIMIBE
     Dosage: 10 MG,UNK
     Route: 048
     Dates: start: 20140101, end: 20180420
  6. PRALUENT [Suspect]
     Active Substance: ALIROCUMAB
     Indication: TYPE IIA HYPERLIPIDAEMIA
     Dosage: 150 MG,QCY
     Route: 058
     Dates: start: 20171030, end: 20180108
  7. RIOPAN [MAGALDRATE] [Concomitant]
     Route: 048
  8. TOTALIP [Concomitant]
     Active Substance: ATORVASTATIN
     Dosage: 40 MG,UNK
     Dates: start: 20140101, end: 20180420

REACTIONS (7)
  - Microalbuminuria [Recovering/Resolving]
  - Hyperfibrinogenaemia [Recovering/Resolving]
  - Periorbital oedema [Recovering/Resolving]
  - Nephrotic syndrome [Recovering/Resolving]
  - Blood creatinine decreased [Recovering/Resolving]
  - Oedema peripheral [Recovering/Resolving]
  - Hyperuricaemia [Recovering/Resolving]

NARRATIVE: CASE EVENT DATE: 20180201
